FAERS Safety Report 8904517 (Version 5)
Quarter: 2014Q4

REPORT INFORMATION
  Report Type: Spontaneous
  Country: US (occurrence: US)
  Receive Date: 20121112
  Receipt Date: 20141104
  Transmission Date: 20150529
  Serious: Yes (Hospitalization, Disabling, Other)
  Sender: FDA-Public Use
  Company Number: US-009507513-1211USA004410

PATIENT
  Sex: Female
  Weight: 72.56 kg

DRUGS (8)
  1. FOSAMAX [Suspect]
     Active Substance: ALENDRONATE SODIUM
     Indication: OSTEOPOROSIS
     Dosage: 70 MG, UNK
     Route: 048
     Dates: start: 2001, end: 201101
  2. FOSAMAX [Suspect]
     Active Substance: ALENDRONATE SODIUM
     Indication: OSTEOPOROSIS
     Dosage: UNK
     Route: 048
     Dates: start: 20100514, end: 201101
  3. HORMONES (UNSPECIFIED) [Concomitant]
     Active Substance: UNSPECIFIED INGREDIENT
     Dosage: UNK
     Dates: start: 1990, end: 2007
  4. RECLAST [Suspect]
     Active Substance: ZOLEDRONIC ACID
     Indication: OSTEOPOROSIS
     Dosage: 5 MG, UNK
     Route: 042
     Dates: start: 201101
  5. ALENDRONATE SODIUM. [Suspect]
     Active Substance: ALENDRONATE SODIUM
     Indication: OSTEOPOROSIS
     Dosage: 70 MG, UNK
     Route: 048
     Dates: start: 20090806, end: 20101231
  6. ACTONEL [Suspect]
     Active Substance: RISEDRONATE SODIUM
     Indication: OSTEOPOROSIS
     Dosage: 5 MG, UNK
     Route: 048
     Dates: start: 20010515, end: 200511
  7. ACTONEL [Suspect]
     Active Substance: RISEDRONATE SODIUM
     Dosage: 35 MG, UNK
     Route: 048
     Dates: start: 20010515, end: 200511
  8. FOSAMAX PLUS D [Suspect]
     Active Substance: ALENDRONATE SODIUM\CHOLECALCIFEROL
     Indication: OSTEOPOROSIS
     Dosage: 70 MG/2800, UNK
     Route: 048
     Dates: start: 20051123, end: 20090804

REACTIONS (17)
  - Hypothyroidism [Unknown]
  - Hypoaesthesia [Unknown]
  - Breast mass [Unknown]
  - Cystocele repair [Unknown]
  - Osteopenia [Unknown]
  - Hyperlipidaemia [Unknown]
  - Pain in extremity [Unknown]
  - Endodontic procedure [Unknown]
  - Gingival disorder [Unknown]
  - Vulvovaginal burning sensation [Unknown]
  - Femur fracture [Not Recovered/Not Resolved]
  - Endodontic procedure [Unknown]
  - Muscle rupture [Unknown]
  - Gastritis [Unknown]
  - Intramedullary rod insertion [Not Recovered/Not Resolved]
  - Arthritis [Unknown]
  - Tonsillectomy [Unknown]

NARRATIVE: CASE EVENT DATE: 2002
